FAERS Safety Report 14784418 (Version 1)
Quarter: 2018Q2

REPORT INFORMATION
  Report Type: Spontaneous
  Country: US (occurrence: US)
  Receive Date: 20180413
  Receipt Date: 20180413
  Transmission Date: 20180711
  Serious: No
  Sender: FDA-Public Use
  Company Number: None

PATIENT
  Age: 13 Year
  Sex: Male
  Weight: 54 kg

DRUGS (6)
  1. BUPROPION HCL 75 MG [Suspect]
     Active Substance: BUPROPION HYDROCHLORIDE
     Indication: DEPRESSION
     Dosage: ?          QUANTITY:1 TABLET(S);?
     Route: 048
     Dates: start: 20180329, end: 20180412
  2. BUPROPIOM HCL 75 MG [Suspect]
     Active Substance: BUPROPION HYDROCHLORIDE
     Indication: ANXIETY
  3. VITAMIN D [Concomitant]
     Active Substance: CHOLECALCIFEROL
  4. BUPROPION HCL 75 MG [Suspect]
     Active Substance: BUPROPION HYDROCHLORIDE
     Indication: ANXIETY
     Dosage: ?          QUANTITY:1 TABLET(S);?
     Route: 048
     Dates: start: 20180329, end: 20180412
  5. ALBUTEROL SULFATE INHALER [Concomitant]
  6. PROBIOTIC [Concomitant]
     Active Substance: PROBIOTICS NOS

REACTIONS (8)
  - Depression [None]
  - Anger [None]
  - Mood swings [None]
  - Product substitution issue [None]
  - Abnormal behaviour [None]
  - Product quality issue [None]
  - Drug ineffective [None]
  - Anxiety [None]

NARRATIVE: CASE EVENT DATE: 20180413
